FAERS Safety Report 5542931-5 (Version None)
Quarter: 2007Q4

REPORT INFORMATION
  Report Type: 
  Country: None (occurrence: None)
  Receive Date: 20071210
  Receipt Date: 20071130
  Transmission Date: 20080405
  Serious: Yes (Hospitalization)
  Sender: FDA-Public Use
  Company Number: DK-ABBOTT-07P-044-0415685-01

PATIENT
  Sex: Female

DRUGS (4)
  1. HUMIRA [Suspect]
     Indication: ANKYLOSING SPONDYLITIS
     Route: 058
     Dates: start: 20061027, end: 20070814
  2. ETODOLAC [Suspect]
     Indication: PAIN
     Dates: end: 20071120
  3. PARACETAMOL [Concomitant]
     Indication: DRUG USE FOR UNKNOWN INDICATION
  4. TRAMADOL HCL [Concomitant]
     Indication: DRUG USE FOR UNKNOWN INDICATION

REACTIONS (10)
  - ANGIOEDEMA [None]
  - APPENDICITIS [None]
  - C-REACTIVE PROTEIN INCREASED [None]
  - DRY MOUTH [None]
  - ENDOMETRIOSIS [None]
  - EYE DISORDER [None]
  - HEADACHE [None]
  - HYPERSENSITIVITY [None]
  - MOVEMENT DISORDER [None]
  - SINUSITIS [None]
